FAERS Safety Report 6860067-8 (Version None)
Quarter: 2010Q2

REPORT INFORMATION
  Report Type: 
  Country: None (occurrence: None)
  Receive Date: 20100528
  Receipt Date: 20100218
  Transmission Date: 20101027
  Serious: Yes (Other)
  Sender: FDA-Public Use
  Company Number: CIP09003447

PATIENT
  Age: 81 Year
  Sex: Female

DRUGS (9)
  1. ACTONEL [Suspect]
     Dosage: 35 MG ONCE WEEKLY, ORAL
     Route: 048
     Dates: start: 20030101, end: 20090601
  2. TRIAMTERENE AND HYDROCHLOROTHIAZIDE (HYDROCHLOROTHIAZIDE, TRIAMTERENE) [Concomitant]
  3. ATENOLOL [Concomitant]
  4. LIPITOR [Concomitant]
  5. ASPIRIN [Concomitant]
  6. ASPIRIN [Concomitant]
  7. VITAMIN C /000008001/ (ASCORBIC ACID) [Concomitant]
  8. MULTIVITAMIN /00097801/ (ASCORBIC ACID, CALCIUM PANTOTHENATE, ERGOCALC [Concomitant]
  9. CALCIUM +D (CALCIUM, ERGOCALCIFEROL) [Concomitant]

REACTIONS (5)
  - BONE DISORDER [None]
  - GINGIVAL DISORDER [None]
  - GINGIVITIS [None]
  - OSTEONECROSIS [None]
  - PRIMARY SEQUESTRUM [None]
